FAERS Safety Report 4741468-0 (Version None)
Quarter: 2005Q3

REPORT INFORMATION
  Report Type: 
  Country: None (occurrence: None)
  Receive Date: 20050808
  Receipt Date: 20050728
  Transmission Date: 20060218
  Serious: Yes (Life-Threatening, Hospitalization, Disabling)
  Sender: FDA-Public Use
  Company Number: 2005-04-0086

PATIENT
  Age: 45 Year
  Sex: Male
  Weight: 80 kg

DRUGS (14)
  1. VIRAFERONPEG [Suspect]
     Indication: HEPATITIS C
     Dosage: 96 UG QW SUBCUTANEOUS
     Route: 058
     Dates: start: 20040201, end: 20050124
  2. REBETOL [Suspect]
     Indication: HEPATITIS C
     Dosage: 800 MG QD ORAL
     Route: 048
     Dates: start: 20040201, end: 20050124
  3. FERROUS SULFATE TAB [Concomitant]
  4. SPECIAFOLDINE TABLETS [Concomitant]
  5. CALCIUM CARBONATE/CHOLECALICIFEROL TABLETS [Concomitant]
  6. LOPERAMIDE [Concomitant]
  7. HEXAQUINE TABLETS [Concomitant]
  8. CLONAZEPAM [Concomitant]
  9. DIAZEPAM [Concomitant]
  10. ATHYMIL TABLETS [Concomitant]
  11. STILNOX TABLETS [Concomitant]
  12. ROHYPNOL TABLETS [Concomitant]
  13. NUTRITIONAL SUPPLEMENTS [Concomitant]
  14. EFFEXOR [Concomitant]

REACTIONS (17)
  - AMYOTROPHIC LATERAL SCLEROSIS [None]
  - ANAEMIA [None]
  - CEREBELLAR SYNDROME [None]
  - CONSTIPATION [None]
  - DIARRHOEA [None]
  - DYSARTHRIA [None]
  - DYSPHAGIA [None]
  - EMPHYSEMA [None]
  - ERECTILE DYSFUNCTION [None]
  - GENERAL PHYSICAL HEALTH DETERIORATION [None]
  - MALNUTRITION [None]
  - MICTURITION URGENCY [None]
  - MUSCLE SPASMS [None]
  - PAIN [None]
  - TENDON DISORDER [None]
  - VISION BLURRED [None]
  - WEIGHT DECREASED [None]
